FAERS Safety Report 4311088-0 (Version None)
Quarter: 2004Q1

REPORT INFORMATION
  Report Type: 
  Country: None (occurrence: None)
  Receive Date: 20040302
  Receipt Date: 20040302
  Transmission Date: 20041129
  Serious: Yes (Death, Life-Threatening, Hospitalization)
  Sender: FDA-Public Use
  Company Number: None

PATIENT
  Age: 81 Year
  Sex: Male
  Weight: 136.1 kg

DRUGS (13)
  1. COLCHICINE [Suspect]
  2. DICLOXACILLIN [Concomitant]
  3. ACETAMINOPHEN [Concomitant]
  4. HYDROCODONE 5 MG/ACETAMINOPHEN [Concomitant]
  5. ALBUTEROL ORAL INH [Concomitant]
  6. CELECOXIB [Concomitant]
  7. DOCUSATE [Concomitant]
  8. FUROSEMIDE [Concomitant]
  9. IPRATROPIUM IHH [Concomitant]
  10. RANITIDINE [Concomitant]
  11. WARFARIN [Concomitant]
  12. METOPROLOL [Concomitant]
  13. HYDROCODONE 5 MG/ACETAMINOPRHEN [Concomitant]

REACTIONS (1)
  - NEUTROPENIA [None]
